FAERS Safety Report 23557212 (Version 2)
Quarter: 2024Q3

REPORT INFORMATION
  Report Type: Spontaneous
  Country: CZ (occurrence: None)
  Receive Date: 20240223
  Receipt Date: 20240701
  Transmission Date: 20241017
  Serious: Yes (Hospitalization)
  Sender: ISTITUTO BICHIMICO ITALIANO GIOVANNI LORENZINI (IBIGEN)
  Company Number: CZ-MEDO2008-000217

PATIENT
  Age: 83 Year
  Sex: Female

DRUGS (12)
  1. CETIRIZINE [Concomitant]
     Active Substance: CETIRIZINE HYDROCHLORIDE
  2. CLINDAMYCIN [Suspect]
     Active Substance: CLINDAMYCIN
     Indication: Postoperative wound infection
  3. FENOFIBRATE [Concomitant]
     Active Substance: FENOFIBRATE
  4. MEROPENEM [Suspect]
     Active Substance: MEROPENEM
     Indication: Urinary tract infection
  5. INDAPAMIDE [Concomitant]
     Active Substance: INDAPAMIDE
  6. CIPROFLOXACIN [Suspect]
     Active Substance: CIPROFLOXACIN
     Indication: Postoperative wound infection
  7. AMLODIPINE [Concomitant]
     Active Substance: AMLODIPINE BESYLATE
  8. LEVOTHYROXINE [Concomitant]
     Active Substance: LEVOTHYROXINE\LEVOTHYROXINE SODIUM
  9. PIPERACILLIN SODIUM\TAZOBACTAM SODIUM [Suspect]
     Active Substance: PIPERACILLIN SODIUM\TAZOBACTAM SODIUM
  10. VINPOCETINE [Concomitant]
     Active Substance: VINPOCETINE
  11. ASPIRIN [Concomitant]
     Active Substance: ASPIRIN
  12. RAMIPRIL [Concomitant]
     Active Substance: RAMIPRIL

REACTIONS (2)
  - Condition aggravated [Recovering/Resolving]
  - Dysphagia [Recovering/Resolving]
